FAERS Safety Report 4483493-3 (Version None)
Quarter: 2004Q4

REPORT INFORMATION
  Report Type: 
  Country: None (occurrence: None)
  Receive Date: 20041019
  Receipt Date: 20041019
  Transmission Date: 20050328
  Serious: Yes (Other)
  Sender: FDA-Public Use
  Company Number: None

PATIENT
  Sex: Male

DRUGS (7)
  1. ARIPIPRAZOLE  15 MG [Suspect]
     Indication: SCHIZOAFFECTIVE DISORDER
     Dosage: 15MG    HS    ORAL
     Route: 048
     Dates: start: 20040709, end: 20040713
  2. LISINOPRIL [Concomitant]
  3. LOVASTATIN [Concomitant]
  4. METOPROLOL SUCCINATE [Concomitant]
  5. OLANZAPINE [Concomitant]
  6. LITHIUM [Concomitant]
  7. LORAZEPAM [Concomitant]

REACTIONS (2)
  - AGITATION [None]
  - TREMOR [None]
